FAERS Safety Report 9974566 (Version 1)
Quarter: 2014Q1

REPORT INFORMATION
  Report Type: Report from Study
  Country: US (occurrence: US)
  Receive Date: 20140306
  Receipt Date: 20140306
  Transmission Date: 20141002
  Serious: No
  Sender: FDA-Public Use
  Company Number: US-ABBVIE-13P-163-1156506-00

PATIENT
  Age: 30 Year
  Sex: Male

DRUGS (2)
  1. HUMIRA [Suspect]
     Indication: CROHN^S DISEASE
     Dates: start: 20130801
  2. LUNESTA [Concomitant]
     Indication: INSOMNIA

REACTIONS (3)
  - Laceration [Not Recovered/Not Resolved]
  - Wound complication [Not Recovered/Not Resolved]
  - Infection [Recovered/Resolved with Sequelae]
